FAERS Safety Report 19844831 (Version 1)
Quarter: 2021Q3

REPORT INFORMATION
  Report Type: Spontaneous
  Country: JP (occurrence: JP)
  Receive Date: 20210916
  Receipt Date: 20210916
  Transmission Date: 20211014
  Serious: Yes (Hospitalization)
  Sender: FDA-Public Use
  Company Number: JP-PFIZER INC-202101166223

PATIENT
  Age: 54 Year
  Sex: Female
  Weight: 49.8 kg

DRUGS (9)
  1. KAKKONTO SISEI [Concomitant]
     Active Substance: HERBALS
  2. MYSER [CYCLOSERINE] [Concomitant]
     Active Substance: CYCLOSERINE
     Dosage: UNK
     Dates: start: 20210731
  3. SOLU?MEDROL [Suspect]
     Active Substance: METHYLPREDNISOLONE SODIUM SUCCINATE
     Indication: URTICARIA
     Dosage: 40 MG
     Dates: start: 20210731
  4. FEXOFENADINE HYDROCHLORIDE. [Suspect]
     Active Substance: FEXOFENADINE HYDROCHLORIDE
     Indication: URTICARIA
     Dosage: 20 MG
     Dates: start: 20210731
  5. EBRANTIL KAKEN [Concomitant]
     Dosage: UNK
     Dates: start: 202105
  6. ALLEGRA [Concomitant]
     Active Substance: FEXOFENADINE HYDROCHLORIDE
     Dosage: UNK
     Dates: start: 20210729, end: 20210731
  7. BIO?THREE [Concomitant]
     Active Substance: HERBALS
  8. BILANOA [Concomitant]
     Active Substance: BILASTINE
     Dosage: UNK
     Dates: start: 20210819
  9. MECOBALAMIN [Concomitant]
     Active Substance: METHYLCOBALAMIN

REACTIONS (7)
  - Erythema [Recovered/Resolved]
  - Conjunctival hyperaemia [Unknown]
  - Rash [Recovered/Resolved]
  - Rash maculo-papular [Recovered/Resolved]
  - Mouth haemorrhage [Unknown]
  - Drug eruption [Recovered/Resolved]
  - Pyrexia [Recovered/Resolved]

NARRATIVE: CASE EVENT DATE: 20210731
